FAERS Safety Report 9103381 (Version 1)
Quarter: 2013Q1

REPORT INFORMATION
  Report Type: Report from Study
  Country: US (occurrence: US)
  Receive Date: 20130219
  Receipt Date: 20130219
  Transmission Date: 20140127
  Serious: Yes (Hospitalization)
  Sender: FDA-Public Use
  Company Number: US-VERTEX PHARMACEUTICALS INC.-2013-002282

PATIENT
  Age: 50 Year
  Sex: Female

DRUGS (1)
  1. INCIVEK [Suspect]
     Indication: HEPATITIS C
     Route: 065

REACTIONS (5)
  - Depression [Unknown]
  - Irritable bowel syndrome [Unknown]
  - Dizziness [Unknown]
  - Weight decreased [Unknown]
  - Drug ineffective [Unknown]
